FAERS Safety Report 7747218-8 (Version None)
Quarter: 2011Q3

REPORT INFORMATION
  Report Type: 
  Country: None (occurrence: None)
  Receive Date: 20110913
  Receipt Date: 20110907
  Transmission Date: 20111222
  Serious: Yes (Other)
  Sender: FDA-Public Use
  Company Number: US-PFIZER INC-2011210086

PATIENT
  Sex: Male
  Weight: 134 kg

DRUGS (2)
  1. TOVIAZ [Suspect]
     Indication: URINARY INCONTINENCE
     Dosage: 4 MG, DAILY
     Dates: start: 20110701, end: 20110101
  2. TOVIAZ [Suspect]
     Dosage: 8 MG, DAILY
     Dates: start: 20110101, end: 20110101

REACTIONS (1)
  - SOMNOLENCE [None]
